FAERS Safety Report 4344419-6 (Version None)
Quarter: 2004Q2

REPORT INFORMATION
  Report Type: 
  Country: None (occurrence: None)
  Receive Date: 20040419
  Receipt Date: 20040402
  Transmission Date: 20050107
  Serious: Yes (Other)
  Sender: FDA-Public Use
  Company Number: 236238

PATIENT
  Age: 1 Day
  Sex: Male

DRUGS (2)
  1. ACTRAPID PENFILL HM (GE) 3 ML (ACTRAPID PENFILL HM (GE) 3 ML(INSULIN H [Suspect]
     Indication: DIABETES MELLITUS
     Dosage: 132 IU, QD, INTRAUTERINE
     Route: 015
     Dates: start: 20031002
  2. INSULATARD PENFILL (INSULIN HUMAN) [Concomitant]

REACTIONS (2)
  - HYPOGLYCAEMIA NEONATAL [None]
  - MATERNAL DRUGS AFFECTING FOETUS [None]
